FAERS Safety Report 13860671 (Version 1)
Quarter: 2017Q3

REPORT INFORMATION
  Report Type: Spontaneous
  Country: US (occurrence: US)
  Receive Date: 20170811
  Receipt Date: 20170811
  Transmission Date: 20171127
  Serious: Yes (Hospitalization)
  Sender: FDA-Public Use
  Company Number: None

PATIENT
  Age: 65 Year
  Sex: Female

DRUGS (1)
  1. AMPYRA [Suspect]
     Active Substance: DALFAMPRIDINE
     Indication: MULTIPLE SCLEROSIS
     Route: 048
     Dates: start: 20150710, end: 20170723

REACTIONS (8)
  - Pyuria [None]
  - Diabetic ketoacidosis [None]
  - Renal impairment [None]
  - Bacteriuria [None]
  - Impaired self-care [None]
  - Therapy cessation [None]
  - Mental status changes [None]
  - Urinary incontinence [None]

NARRATIVE: CASE EVENT DATE: 20170720
